FAERS Safety Report 7155319-0 (Version None)
Quarter: 2010Q4

REPORT INFORMATION
  Report Type: 
  Country: None (occurrence: None)
  Receive Date: 20101214
  Receipt Date: 20101203
  Transmission Date: 20110411
  Serious: Yes (Hospitalization)
  Sender: FDA-Public Use
  Company Number: US-BIOGENIDEC-2009BI017462

PATIENT
  Age: 45 Year
  Sex: Female
  Weight: 90 kg

DRUGS (15)
  1. TYSABRI [Suspect]
     Indication: MULTIPLE SCLEROSIS
     Route: 042
     Dates: start: 20080609, end: 20081017
  2. TYSABRI [Suspect]
     Route: 042
     Dates: start: 20090227
  3. IMITREX [Concomitant]
     Indication: MIGRAINE
  4. PRISTIQ [Concomitant]
     Indication: PRODUCT USED FOR UNKNOWN INDICATION
  5. LORAZEPAM [Concomitant]
     Indication: PANIC ATTACK
     Route: 048
  6. IMITREX [Concomitant]
  7. SENOKOT [Concomitant]
     Indication: IRRITABLE BOWEL SYNDROME
  8. SENOKOT [Concomitant]
     Indication: CONSTIPATION
  9. DULCOLAX [Concomitant]
     Indication: IRRITABLE BOWEL SYNDROME
  10. DULCOLAX [Concomitant]
     Indication: CONSTIPATION
  11. OXYCONTIN [Concomitant]
     Indication: PAIN
     Dates: start: 20101101
  12. EXALGO ER [Concomitant]
     Indication: PAIN
     Route: 048
     Dates: start: 20101101
  13. VITAMIN TAB [Concomitant]
     Indication: POSTOPERATIVE CARE
     Dates: start: 20040101
  14. PROPRANOLOL [Concomitant]
     Indication: POSTOPERATIVE CARE
     Dates: start: 20040101
  15. CALCIUM CITRATE [Concomitant]
     Indication: POSTOPERATIVE CARE
     Dates: start: 20040101

REACTIONS (18)
  - ANAPHYLACTIC SHOCK [None]
  - APHONIA [None]
  - CONSTIPATION [None]
  - DEPRESSED MOOD [None]
  - DIARRHOEA [None]
  - DYSURIA [None]
  - EYE PAIN [None]
  - FATIGUE [None]
  - INFUSION SITE REACTION [None]
  - IRRITABLE BOWEL SYNDROME [None]
  - MEMORY IMPAIRMENT [None]
  - MIGRAINE [None]
  - MULTIPLE SCLEROSIS RELAPSE [None]
  - NASAL ULCER [None]
  - PAIN IN EXTREMITY [None]
  - PANIC ATTACK [None]
  - POST PROCEDURAL COMPLICATION [None]
  - REFLEXES ABNORMAL [None]
